FAERS Safety Report 10638394 (Version 1)
Quarter: 2014Q4

REPORT INFORMATION
  Report Type: Spontaneous
  Country: US (occurrence: None)
  Receive Date: 20141121
  Receipt Date: 20141121
  Transmission Date: 20150529
  Serious: No
  Sender: FDA-Public Use
  Company Number: 163-10004-14082536

PATIENT
  Age: 71 Year
  Sex: Female
  Weight: 90.72 kg

DRUGS (10)
  1. IRON (IRON) (UNKNOWN) [Concomitant]
  2. OTEZLA [Suspect]
     Active Substance: APREMILAST
     Indication: PSORIATIC ARTHROPATHY
     Route: 048
     Dates: start: 20130809
  3. CENTRUM (UNKNOWN) [Concomitant]
  4. TRAZODONE [Concomitant]
     Active Substance: TRAZODONE HYDROCHLORIDE
  5. ASPIRIN (UNKNOWN) [Concomitant]
     Active Substance: ASPIRIN
  6. VIT D3 (COLECALCIFEROL) (UNKNOWN) [Concomitant]
  7. CYMBALTA (DULOXETINE HYDROCHLORIDE) (UNKNOWN) [Concomitant]
  8. TRIAMTERENE HYDROCHLOROTHIAZIDE (UNKNOWN) [Concomitant]
  9. LISINOPRIL (LISINOPRIL) (UNKNOWN) (LISINOPRIL) [Concomitant]
     Active Substance: LISINOPRIL
  10. CALCIUM (CALCIUM) (UNKNOWN) [Concomitant]

REACTIONS (1)
  - Pain [None]

NARRATIVE: CASE EVENT DATE: 20140809
